FAERS Safety Report 10517693 (Version 2)
Quarter: 2014Q4

REPORT INFORMATION
  Report Type: Report from Study
  Country: BR (occurrence: BR)
  Receive Date: 20141014
  Receipt Date: 20141023
  Transmission Date: 20150528
  Serious: Yes (Other)
  Sender: FDA-Public Use
  Company Number: PHHY2014BR134078

PATIENT
  Sex: Male

DRUGS (6)
  1. EXELON [Suspect]
     Active Substance: RIVASTIGMINE TARTRATE
     Dosage: 1 DF, QD (ONE CAPSULES PER DAY)
     Route: 065
  2. METFORMIN [Concomitant]
     Active Substance: METFORMIN HYDROCHLORIDE
     Indication: DIABETES MELLITUS
     Dosage: 2 DF, QD (TWO TABLETS PER DAY)
     Route: 048
  3. GLIMEPIRIDA [Concomitant]
     Active Substance: GLIMEPIRIDE
     Indication: PRODUCT USED FOR UNKNOWN INDICATION
     Dosage: 1 DF, QD (ONE TABLET PER DAY)
     Route: 048
  4. LOSARTANA [Concomitant]
     Active Substance: LOSARTAN
     Indication: BLOOD PRESSURE INADEQUATELY CONTROLLED
     Dosage: 2 DF, QD (TWO TABLETS PER DAY)
     Route: 065
  5. ROSUVASTATINA [Concomitant]
     Indication: BLOOD TRIGLYCERIDES INCREASED
     Dosage: 1 DF, QD
     Route: 048
  6. EXELON [Suspect]
     Active Substance: RIVASTIGMINE TARTRATE
     Indication: MEMORY IMPAIRMENT
     Dosage: 2 DF, QD (TWO CAPSULES PER DAY)
     Route: 065
     Dates: start: 201408

REACTIONS (5)
  - Memory impairment [Not Recovered/Not Resolved]
  - Aortic aneurysm [Not Recovered/Not Resolved]
  - Dizziness [Recovered/Resolved]
  - Blood glucose abnormal [Not Recovered/Not Resolved]
  - Drug administration error [Not Recovered/Not Resolved]
